FAERS Safety Report 4416583-1 (Version None)
Quarter: 2004Q3

REPORT INFORMATION
  Report Type: 
  Country: None (occurrence: None)
  Receive Date: 20040802
  Receipt Date: 20040719
  Transmission Date: 20050211
  Serious: Yes (Hospitalization)
  Sender: FDA-Public Use
  Company Number: NSADSS2002024390

PATIENT
  Age: 35 Year
  Sex: Male
  Weight: 81 kg

DRUGS (7)
  1. REMICADE [Suspect]
     Indication: RHEUMATOID ARTHRITIS
     Dosage: SEE IMAGE
     Route: 041
     Dates: start: 20020617, end: 20020617
  2. REMICADE [Suspect]
     Indication: RHEUMATOID ARTHRITIS
     Dosage: SEE IMAGE
     Route: 041
     Dates: start: 20020701, end: 20020701
  3. OMEPRAZOLE [Concomitant]
  4. METHOTREXATE [Concomitant]
  5. AZATHIOPRINE [Concomitant]
  6. VIDEX [Concomitant]
  7. PHENYLBUTAZONE (PHENYLBUTAZONE) [Concomitant]

REACTIONS (2)
  - ATRIAL FIBRILLATION [None]
  - HYPERHIDROSIS [None]
